FAERS Safety Report 20517007 (Version 2)
Quarter: 2022Q1

REPORT INFORMATION
  Report Type: Report from Study
  Country: DK (occurrence: None)
  Receive Date: 20220225
  Receipt Date: 20220304
  Transmission Date: 20220423
  Serious: Yes (Hospitalization)
  Sender: FDA-Public Use
  Company Number: DK-ROCHE-3028452

PATIENT
  Age: 65 Year
  Sex: Male
  Weight: 83 kg

DRUGS (4)
  1. ATEZOLIZUMAB [Suspect]
     Active Substance: ATEZOLIZUMAB
     Indication: Radical cystectomy
     Dosage: NEXT DOSES ON 07/OCT/2020, 16/DEC/2020, 10/MAR/2021, 14/APR/2021, 05/MAY/2021, 26/MAY/2021, 16/JUN/2
     Route: 041
     Dates: start: 20200916
  2. FUROSEMIDE [Concomitant]
     Active Substance: FUROSEMIDE
  3. POTASSIUM CHLORIDE [Concomitant]
     Active Substance: POTASSIUM CHLORIDE
  4. SELEXID (DENMARK) [Concomitant]

REACTIONS (6)
  - COVID-19 [Recovered/Resolved]
  - Urosepsis [Recovered/Resolved]
  - Cholecystitis [Recovered/Resolved]
  - Abdominal pain [Recovered/Resolved]
  - Urinary bladder abscess [Recovered/Resolved]
  - Urinary retention [Recovered/Resolved]

NARRATIVE: CASE EVENT DATE: 20201026
